FAERS Safety Report 4840031-0 (Version None)
Quarter: 2005Q4

REPORT INFORMATION
  Report Type: 
  Country: None (occurrence: None)
  Receive Date: 20051125
  Receipt Date: 20051111
  Transmission Date: 20060501
  Serious: Yes (Life-Threatening, Hospitalization)
  Sender: FDA-Public Use
  Company Number: 2005RL000167

PATIENT
  Age: 84 Year
  Sex: Female

DRUGS (7)
  1. PROPAFENONE HCL [Suspect]
     Indication: ATRIAL FIBRILLATION
     Dosage: 300 MG; QD; PO
     Route: 048
     Dates: start: 19900101, end: 20051006
  2. PROPAFENONE HCL [Suspect]
     Indication: ATRIAL FLUTTER
     Dosage: 300 MG; QD; PO
     Route: 048
     Dates: start: 19900101, end: 20051006
  3. SPASMAG [Concomitant]
  4. NAFTAZONE [Concomitant]
  5. NITRAZEPAM [Concomitant]
  6. LISINOPRIL [Concomitant]
  7. ENALAPRIL [Concomitant]

REACTIONS (10)
  - ATRIOVENTRICULAR BLOCK [None]
  - BLOOD PRESSURE DECREASED [None]
  - BUNDLE BRANCH BLOCK LEFT [None]
  - CARDIAC FAILURE ACUTE [None]
  - CYANOSIS [None]
  - LOSS OF CONSCIOUSNESS [None]
  - OVERDOSE [None]
  - RENAL FAILURE [None]
  - RESPIRATORY DISTRESS [None]
  - VENTRICULAR TACHYCARDIA [None]
